FAERS Safety Report 5176913-2 (Version None)
Quarter: 2006Q4

REPORT INFORMATION
  Report Type: 
  Country: None (occurrence: None)
  Receive Date: 20061207
  Receipt Date: 20061127
  Transmission Date: 20070319
  Serious: Yes (Hospitalization)
  Sender: FDA-Public Use
  Company Number: 012689

PATIENT
  Age: 66 Year
  Sex: Male

DRUGS (3)
  1. PRIALT [Suspect]
     Indication: PAIN
     Dosage: INTRATHECAL ; 0.02UG, ONCE/HOUR, INTRATHECAL
     Route: 037
     Dates: end: 20050811
  2. PRIALT [Suspect]
     Indication: PAIN
     Dosage: INTRATHECAL ; 0.02UG, ONCE/HOUR, INTRATHECAL
     Route: 037
     Dates: start: 20050811, end: 20051028
  3. OXYCONTIN [Concomitant]

REACTIONS (2)
  - LUNG DISORDER [None]
  - URINARY RETENTION [None]
